FAERS Safety Report 18847990 (Version 3)
Quarter: 2021Q1

REPORT INFORMATION
  Report Type: Spontaneous
  Country: US (occurrence: US)
  Receive Date: 20210204
  Receipt Date: 20210216
  Transmission Date: 20210419
  Serious: No
  Sender: FDA-Public Use
  Company Number: US-PFIZER INC-2021092350

PATIENT
  Age: 80 Year
  Sex: Female

DRUGS (1)
  1. IBRANCE [Suspect]
     Active Substance: PALBOCICLIB
     Indication: BREAST CANCER FEMALE
     Dosage: 125 MG, CYCLIC (TAKE ONE DAILY BY MOUTH FOR 21 DAYS AND A WEEK OFF)
     Route: 048
     Dates: start: 201810

REACTIONS (2)
  - Lacrimation increased [Not Recovered/Not Resolved]
  - Product dose omission issue [Unknown]
